FAERS Safety Report 15980767 (Version 1)
Quarter: 2019Q1

REPORT INFORMATION
  Report Type: Spontaneous
  Country: IN (occurrence: IN)
  Receive Date: 20190219
  Receipt Date: 20190219
  Transmission Date: 20190418
  Serious: Yes (Life-Threatening, Hospitalization, Other)
  Sender: FDA-Public Use
  Company Number: IN-PFIZER INC-2019067218

PATIENT
  Age: 25 Year
  Sex: Male

DRUGS (23)
  1. PHENYTOIN. [Suspect]
     Active Substance: PHENYTOIN
     Indication: SEIZURE
     Dosage: 100 MG, 3X/DAY
     Route: 048
  2. ZINC. [Concomitant]
     Active Substance: ZINC
     Dosage: UNK, DAILY (ZINC-1)
  3. PHENYTOIN SODIUM. [Suspect]
     Active Substance: PHENYTOIN SODIUM
     Dosage: 100 MG, 3X/DAY (INJECTION)
     Route: 042
     Dates: start: 201604
  4. SODIUM VALPROATE [Concomitant]
     Active Substance: VALPROATE SODIUM
     Dosage: 200 MG, 3X/DAY (TABLET)
     Dates: start: 201604
  5. METRONIDAZOLE. [Concomitant]
     Active Substance: METRONIDAZOLE
     Dosage: 500 MG, 3X/DAY
     Route: 042
     Dates: start: 201604
  6. PHENYTOIN. [Suspect]
     Active Substance: PHENYTOIN
     Dosage: 100 MG, 2X/DAY
     Dates: start: 201604
  7. SODIUM VALPROATE [Concomitant]
     Active Substance: VALPROATE SODIUM
     Dosage: 200 MG, 2X/DAY (TABLET)
     Dates: start: 201604
  8. RINGER-LACTATE SOLUTION [Concomitant]
     Dosage: UNK (2 PINT)
     Dates: start: 201604
  9. PARACETAMOL [Concomitant]
     Active Substance: ACETAMINOPHEN
     Dosage: UNK, 3X/DAY
     Dates: start: 201604
  10. SODIUM VALPROATE [Concomitant]
     Active Substance: VALPROATE SODIUM
     Indication: SEIZURE
     Dosage: 200 MG, 3X/DAY (TABLET)
     Route: 048
  11. RINGER-LACTATE SOLUTION [Concomitant]
     Dosage: UNK (2 PINT)
     Route: 042
     Dates: start: 201604
  12. GLUCOSE/SODIUM CHLORIDE [Concomitant]
     Dosage: UNK (1 PINT)
     Route: 042
     Dates: start: 201604
  13. VITAMIN B COMPLEX [Concomitant]
     Active Substance: CYANOCOBALAMIN\DEXPANTHENOL\NIACINAMIDE\PYRIDOXINE HYDROCHLORIDE\RIBOFLAVIN 5^-PHOSPHATE SODIUM\THIAMINE HYDROCHLORIDE\VITAMIN B COMPLEX
     Dosage: UNK, 1X/DAY (INJECTION)
     Dates: start: 201604
  14. METRONIDAZOLE. [Concomitant]
     Active Substance: METRONIDAZOLE
     Dosage: 500 MG, 2X/DAY
     Route: 042
     Dates: start: 201604
  15. PHENOBARBITONE SODIUM [Concomitant]
     Active Substance: PHENOBARBITAL SODIUM
     Indication: SEIZURE
     Dosage: 30 MG, DAILY
     Route: 048
  16. NORMAL SALINE [Concomitant]
     Active Substance: SODIUM CHLORIDE
     Dosage: UNK (1PINT)
     Dates: start: 201604
  17. CEFOTAXIME [Concomitant]
     Active Substance: CEFOTAXIME SODIUM
     Dosage: 1 G, 2X/DAY
     Route: 042
     Dates: start: 201604
  18. PHENYTOIN SODIUM. [Suspect]
     Active Substance: PHENYTOIN SODIUM
     Indication: SEIZURE
     Dosage: 600 MG, UNK (INJECTION, IN NORMAL SALINE)
     Route: 042
     Dates: start: 201604
  19. RINGER-LACTATE SOLUTION [Concomitant]
     Dosage: UNK (1 PINT)
     Route: 042
     Dates: start: 201604
  20. RANITIDINE. [Concomitant]
     Active Substance: RANITIDINE
     Dosage: 50 MG, 2X/DAY (INJECTION)
     Route: 042
     Dates: start: 201604
  21. NORMAL SALINE [Concomitant]
     Active Substance: SODIUM CHLORIDE
     Dosage: UNK (1PINT)
     Route: 042
     Dates: start: 201604
  22. CIPROFLOXACIN. [Concomitant]
     Active Substance: CIPROFLOXACIN
     Dosage: 200 MG, 2X/DAY
     Route: 042
     Dates: start: 201604
  23. DIAZEPAM. [Concomitant]
     Active Substance: DIAZEPAM
     Dosage: 2.5 MG, 2X/DAY
     Route: 042
     Dates: start: 201604

REACTIONS (2)
  - Blood pressure fluctuation [Recovering/Resolving]
  - Bone marrow failure [Recovering/Resolving]
